FAERS Safety Report 9175530 (Version 1)
Quarter: 2013Q1

REPORT INFORMATION
  Report Type: Spontaneous
  Country: US (occurrence: US)
  Receive Date: 20130320
  Receipt Date: 20130320
  Transmission Date: 20140127
  Serious: No
  Sender: FDA-Public Use
  Company Number: US-PFIZER INC-2013088863

PATIENT
  Age: 41 Year
  Sex: Female
  Weight: 90.7 kg

DRUGS (3)
  1. ZITHROMAX [Suspect]
     Indication: NASOPHARYNGITIS
     Dosage: UNK
     Route: 048
  2. ZITHROMAX [Suspect]
     Dosage: 12.5 ML, 1X/DAY
     Route: 048
     Dates: start: 20130227
  3. ZITHROMAX [Suspect]
     Dosage: 7.5 ML, 1X/DAY
     Route: 048
     Dates: end: 20130303

REACTIONS (4)
  - Pruritus [Unknown]
  - Photophobia [Unknown]
  - Nausea [Unknown]
  - Abdominal pain upper [Unknown]
